FAERS Safety Report 19566501 (Version 1)
Quarter: 2021Q3

REPORT INFORMATION
  Report Type: Spontaneous
  Country: CA (occurrence: CA)
  Receive Date: 20210716
  Receipt Date: 20210716
  Transmission Date: 20211014
  Serious: Yes (Other)
  Sender: FDA-Public Use
  Company Number: CA-VALIDUS PHARMACEUTICALS LLC-CA-VDP-2021-000046

PATIENT
  Age: 25 Year
  Sex: Female

DRUGS (6)
  1. OXYTOCIN. [Concomitant]
     Active Substance: OXYTOCIN
     Route: 065
  2. HEPARIN SODIUM. [Suspect]
     Active Substance: HEPARIN SODIUM
     Indication: PREMATURE SEPARATION OF PLACENTA
     Dosage: 1100 INTERNATIONAL UNIT
     Route: 042
  3. HYDRALAZINE [Suspect]
     Active Substance: HYDRALAZINE HYDROCHLORIDE
     Indication: HYPERTENSION
     Route: 041
  4. PETHIDINE HYDROCHLORIDE [Suspect]
     Active Substance: MEPERIDINE HYDROCHLORIDE
     Indication: PAIN
     Dosage: 100 MILLIGRAM
     Route: 030
  5. HEPARIN SODIUM. [Suspect]
     Active Substance: HEPARIN SODIUM
     Dosage: 5000 INTERNATIONAL UNIT (SOLUTION INTRAVENOUS)
     Route: 042
  6. PHENOXYBENZAMINE [Suspect]
     Active Substance: PHENOXYBENZAMINE
     Indication: LABOUR INDUCTION
     Route: 065

REACTIONS (2)
  - Stillbirth [Unknown]
  - Product use issue [Unknown]
